FAERS Safety Report 25759058 (Version 1)
Quarter: 2025Q3

REPORT INFORMATION
  Report Type: Report from Study
  Country: IN (occurrence: IN)
  Receive Date: 20250904
  Receipt Date: 20250904
  Transmission Date: 20251021
  Serious: Yes (Death)
  Sender: AMGEN
  Company Number: IN-AMGEN-INDSL2025174630

PATIENT
  Age: 68 Year
  Sex: Male

DRUGS (1)
  1. VECTIBIX [Suspect]
     Active Substance: PANITUMUMAB
     Indication: Colorectal cancer metastatic
     Route: 040
     Dates: start: 20240522, end: 20250702

REACTIONS (3)
  - Liver disorder [Fatal]
  - Asthenia [Fatal]
  - Illness [Fatal]
